FAERS Safety Report 8368851-9 (Version None)
Quarter: 2012Q2

REPORT INFORMATION
  Report Type: 
  Country: None (occurrence: None)
  Receive Date: 20120516
  Receipt Date: 20120420
  Transmission Date: 20120825
  Serious: No
  Sender: FDA-Public Use
  Company Number: PI-07107

PATIENT
  Age: 1 Day
  Sex: Male

DRUGS (1)
  1. CHLORAPREP [Suspect]
     Indication: PREOPERATIVE CARE
     Dosage: 1.75ML, 2X, TOPICAL
     Route: 061
     Dates: start: 20120411

REACTIONS (5)
  - WOUND [None]
  - ERYTHEMA [None]
  - CHEMICAL INJURY [None]
  - WRONG TECHNIQUE IN DRUG USAGE PROCESS [None]
  - EXCORIATION [None]
